FAERS Safety Report 7437757-1 (Version None)
Quarter: 2011Q2

REPORT INFORMATION
  Report Type: 
  Country: None (occurrence: None)
  Receive Date: 20110426
  Receipt Date: 20110419
  Transmission Date: 20111010
  Serious: Yes (Death, Hospitalization, Other)
  Sender: FDA-Public Use
  Company Number: SK-PFIZER INC-2011085256

PATIENT
  Sex: Male

DRUGS (10)
  1. INSULIN [Concomitant]
  2. DIGOXIN [Concomitant]
  3. FUROSEMIDE [Concomitant]
  4. PREDNISONE [Concomitant]
  5. CASPOFUNGIN [Concomitant]
  6. LAMOTRIGINE [Concomitant]
  7. VORICONAZOLE [Suspect]
     Dosage: 400 MG, UNK
  8. MALTOFER [Concomitant]
  9. CONCOR [Concomitant]
  10. MILURIT [Concomitant]

REACTIONS (4)
  - DEATH [None]
  - MYCOBACTERIAL INFECTION [None]
  - BRONCHOPNEUMONIA [None]
  - SOPOR [None]
